FAERS Safety Report 9157961 (Version 1)
Quarter: 2013Q1

REPORT INFORMATION
  Report Type: Spontaneous
  Country: US (occurrence: None)
  Receive Date: 20130212
  Receipt Date: 20130212
  Transmission Date: 20140127
  Serious: Yes (Hospitalization)
  Sender: FDA-Public Use
  Company Number: 2013-0179

PATIENT
  Age: 71 Year
  Sex: Female
  Weight: 58.5 kg

DRUGS (10)
  1. CARFILZOMIB [Suspect]
     Indication: PLASMA CELL MYELOMA
     Dosage: (DAYS 1, 2), INTRAVENOUS
     Dates: start: 20111001
  2. PANTOPRAZOLE SODIUM (PANTOPRAZOLE SODIUM SESQUIHYDRATE) (ENTERIC-COATED TABLET) (PANTOPRAZOLE SODIUM SESQUIHYDRATE) [Concomitant]
  3. METOPROLOL SUCCINATE (METOPROLOL SUCCINATE) (TABLET) (METOPROLOL SUCCINATE) [Concomitant]
  4. VITAMIN D 2000 (COLECALCIFEROL) (CAPSULE) (COLECALCIFEROL) [Concomitant]
  5. MAG-OX 400 (MAGNESIUM OXIDE) (TABLET) (MAGNESIUM OXIDE) [Concomitant]
  6. ACYCLOVIR (ACICLOVIR) (TABLET) (ACICLOVIR) [Concomitant]
  7. KLOR-CON M10 (POTASSIUM CHLORIDE) (TABLET) (POTASSIUM CHLORIDE) [Concomitant]
  8. PHOS-NAK 280 (SODIUM PHOSPHATE DIBASIC) (SODIUM PHOSPHATE DIBASIC) [Concomitant]
  9. CARDIZEM CD (DILTIAZEM HYDROCHLORIDE) (TABLET) (DILTIAZEM HYDROCHLORIDE) [Concomitant]
  10. DEXAMETHASONE (DEXAMETHASONE) (DEXAMETHASONE) [Concomitant]

REACTIONS (10)
  - Atrial fibrillation [None]
  - Pneumonia [None]
  - Human rhinovirus test positive [None]
  - Renal failure [None]
  - Pulmonary hypertension [None]
  - Hypoxia [None]
  - Hypotension [None]
  - Acute respiratory failure [None]
  - Cardio-respiratory arrest [None]
  - Cardiogenic shock [None]
